FAERS Safety Report 4373326-8 (Version None)
Quarter: 2004Q2

REPORT INFORMATION
  Report Type: 
  Country: None (occurrence: None)
  Receive Date: 20040603
  Receipt Date: 20040520
  Transmission Date: 20050107
  Serious: Yes (Hospitalization)
  Sender: FDA-Public Use
  Company Number: K200400763

PATIENT
  Age: 34 Year
  Sex: Male
  Weight: 79.4 kg

DRUGS (1)
  1. ALTACE [Suspect]
     Indication: HYPERTENSION
     Dosage: 2.5 MG, QD, MORNING, ORAL
     Route: 048
     Dates: start: 20040421, end: 20040421

REACTIONS (2)
  - ANGINA PECTORIS [None]
  - BLOOD PRESSURE INCREASED [None]
